FAERS Safety Report 20317076 (Version 4)
Quarter: 2022Q1

REPORT INFORMATION
  Report Type: Report from Study
  Country: US (occurrence: US)
  Receive Date: 20220110
  Receipt Date: 20220329
  Transmission Date: 20220423
  Serious: Yes (Other)
  Sender: FDA-Public Use
  Company Number: US-INSMED, INC.-2021-08243-US

PATIENT
  Sex: Female

DRUGS (4)
  1. ARIKAYCE [Suspect]
     Active Substance: AMIKACIN
     Indication: Mycobacterium avium complex infection
     Dosage: 590 MILLIGRAM, BIW
     Route: 055
     Dates: start: 202109, end: 202109
  2. ARIKAYCE [Suspect]
     Active Substance: AMIKACIN
     Dosage: 590 MILLIGRAM, TIW
     Route: 055
     Dates: start: 2021, end: 2021
  3. ARIKAYCE [Suspect]
     Active Substance: AMIKACIN
     Dosage: 590 MILLIGRAM, QD
     Route: 055
     Dates: start: 2021
  4. ALBUTEROL [Concomitant]
     Active Substance: ALBUTEROL
     Indication: Product used for unknown indication

REACTIONS (20)
  - Urinary retention [Not Recovered/Not Resolved]
  - Renal disorder [Not Recovered/Not Resolved]
  - Candida test positive [Recovered/Resolved]
  - Exposure via mucosa [Unknown]
  - Sputum increased [Unknown]
  - Decreased appetite [Not Recovered/Not Resolved]
  - Weight decreased [Not Recovered/Not Resolved]
  - Productive cough [Recovering/Resolving]
  - Throat irritation [Unknown]
  - Cough [Unknown]
  - Oropharyngeal pain [Recovering/Resolving]
  - Dysphonia [Not Recovered/Not Resolved]
  - Drug ineffective [Unknown]
  - Accidental underdose [Unknown]
  - Wrong technique in product usage process [Unknown]
  - Off label use [Unknown]
  - Device issue [Unknown]
  - Drug dose omission by device [Unknown]
  - Device use issue [Unknown]
  - Intentional dose omission [Unknown]

NARRATIVE: CASE EVENT DATE: 20210101
